FAERS Safety Report 10227984 (Version 2)
Quarter: 2014Q4

REPORT INFORMATION
  Report Type: Spontaneous
  Country: FR (occurrence: None)
  Receive Date: 20140606
  Receipt Date: 20141208
  Transmission Date: 20150528
  Serious: Yes (Hospitalization)
  Sender: FDA-Public Use
  Company Number: 2014MPI00645

PATIENT
  Age: 22 Year
  Sex: Female

DRUGS (1)
  1. ADCETRIS [Suspect]
     Active Substance: BRENTUXIMAB VEDOTIN
     Indication: HODGKIN^S DISEASE
     Route: 042
     Dates: end: 20130923

REACTIONS (8)
  - Dyspnoea [None]
  - Anaphylactoid reaction [None]
  - Abdominal pain [None]
  - Pharyngeal disorder [None]
  - Hypotension [None]
  - Erythema [None]
  - Pruritus [None]
  - Dysarthria [None]

NARRATIVE: CASE EVENT DATE: 20130923
